FAERS Safety Report 17871088 (Version 4)
Quarter: 2025Q2

REPORT INFORMATION
  Report Type: Report from Study
  Country: US (occurrence: US)
  Receive Date: 20200608
  Receipt Date: 20250415
  Transmission Date: 20250716
  Serious: Yes (Death, Hospitalization, Other)
  Sender: TAKEDA
  Company Number: US-TAKEDA-2020TUS025413

PATIENT
  Age: 66 Year
  Sex: Female
  Weight: 104 kg

DRUGS (15)
  1. PONATINIB [Suspect]
     Active Substance: PONATINIB
     Indication: Chronic myeloid leukaemia
     Dosage: 45 MILLIGRAM, QD
     Dates: start: 201711
  2. PONATINIB [Suspect]
     Active Substance: PONATINIB
     Dosage: 40 MILLIGRAM, QD
     Dates: start: 201811
  3. PONATINIB [Suspect]
     Active Substance: PONATINIB
     Dosage: 45 MILLIGRAM, QD
     Dates: start: 20190319
  4. PLAVIX [Concomitant]
     Active Substance: CLOPIDOGREL BISULFATE
  5. SOTALOL [Concomitant]
     Active Substance: SOTALOL
     Indication: Blood pressure abnormal
  6. VITAMIN B6 [Concomitant]
     Active Substance: PYRIDOXINE HYDROCHLORIDE
  7. LIPITOR [Concomitant]
     Active Substance: ATORVASTATIN CALCIUM
  8. LEVOTHYROXINE [Concomitant]
     Active Substance: LEVOTHYROXINE
  9. MAGNESIUM [Concomitant]
     Active Substance: MAGNESIUM
  10. VITAMIN B12 [Concomitant]
     Active Substance: CYANOCOBALAMIN
  11. SPIRONOLACTONE [Concomitant]
     Active Substance: SPIRONOLACTONE
  12. FAMOTIDINE [Concomitant]
     Active Substance: FAMOTIDINE
  13. FUROSEMIDE [Concomitant]
     Active Substance: FUROSEMIDE
  14. XARELTO [Concomitant]
     Active Substance: RIVAROXABAN
  15. IRBESARTAN [Concomitant]
     Active Substance: IRBESARTAN

REACTIONS (18)
  - Death [Fatal]
  - Atrial fibrillation [Unknown]
  - Abdominal pain upper [Recovered/Resolved]
  - Dyspepsia [Recovered/Resolved]
  - Nausea [Unknown]
  - Flatulence [Not Recovered/Not Resolved]
  - COVID-19 [Recovered/Resolved]
  - Multiple allergies [Unknown]
  - Allergy to plants [Unknown]
  - Product dose omission issue [Unknown]
  - Influenza [Unknown]
  - Alopecia [Unknown]
  - Vomiting [Unknown]
  - Chest pain [Recovered/Resolved]
  - Urinary tract infection [Unknown]
  - Dizziness [Unknown]
  - Musculoskeletal pain [Unknown]
  - Asthenia [Unknown]

NARRATIVE: CASE EVENT DATE: 20200603
